FAERS Safety Report 5152680-3 (Version None)
Quarter: 2006Q4

REPORT INFORMATION
  Report Type: 
  Country: None (occurrence: None)
  Receive Date: 20061109
  Receipt Date: 20061030
  Transmission Date: 20070319
  Serious: Yes (Death)
  Sender: FDA-Public Use
  Company Number: S06-USA-04545-01

PATIENT
  Age: 55 Year
  Sex: Male

DRUGS (10)
  1. CELEXA [Suspect]
     Indication: DEPRESSION
     Dosage: 20 MG QD PO
     Route: 048
     Dates: start: 20051001, end: 20060214
  2. CELEXA [Suspect]
     Indication: DEPRESSION
     Dosage: 30 MG QD PO
     Route: 048
     Dates: start: 20060215, end: 20060602
  3. METHADONE HCL [Suspect]
     Indication: PAIN
     Dosage: 10 MG QID
     Dates: start: 20060526, end: 20060602
  4. METOPROLOL [Concomitant]
  5. GABAPENTIN [Concomitant]
  6. TEMAZEPAM [Concomitant]
  7. NIFEDIPINE [Concomitant]
  8. DYPHENHYDRAMINE [Concomitant]
  9. BUSPAR [Concomitant]
  10. TRAZODONE HCL [Concomitant]

REACTIONS (2)
  - ACCIDENTAL OVERDOSE [None]
  - DRUG TOXICITY [None]
